FAERS Safety Report 5096011-6 (Version None)
Quarter: 2006Q3

REPORT INFORMATION
  Report Type: 
  Country: None (occurrence: None)
  Receive Date: 20060905
  Receipt Date: 20060824
  Transmission Date: 20061208
  Serious: Yes (Hospitalization)
  Sender: FDA-Public Use
  Company Number: FR-GLAXOSMITHKLINE-B0436257A

PATIENT
  Age: 59 Year
  Sex: Male

DRUGS (1)
  1. ZEFFIX [Suspect]
     Indication: HEPATITIS B
     Dosage: 100MG PER DAY
     Route: 048
     Dates: start: 20060724, end: 20060810

REACTIONS (20)
  - ABDOMINAL PAIN [None]
  - ANOREXIA [None]
  - ASTHENIA [None]
  - BLOOD CREATINE INCREASED [None]
  - BLOOD POTASSIUM INCREASED [None]
  - C-REACTIVE PROTEIN INCREASED [None]
  - DEHYDRATION [None]
  - DIALYSIS [None]
  - GENERAL PHYSICAL HEALTH DETERIORATION [None]
  - HYPONATRAEMIA [None]
  - LACTIC ACIDOSIS [None]
  - LEUKOCYTOSIS [None]
  - METABOLIC ACIDOSIS [None]
  - PROTHROMBIN LEVEL DECREASED [None]
  - RENAL FAILURE [None]
  - SKIN TURGOR DECREASED [None]
  - SUBILEUS [None]
  - TACHYCARDIA [None]
  - TACHYPNOEA [None]
  - WEIGHT DECREASED [None]
